FAERS Safety Report 24090895 (Version 1)
Quarter: 2024Q3

REPORT INFORMATION
  Report Type: Spontaneous
  Country: AU (occurrence: AU)
  Receive Date: 20240715
  Receipt Date: 20240715
  Transmission Date: 20241016
  Serious: Yes (Other)
  Sender: PFIZER
  Company Number: AU-PFIZER INC-PV202400090029

PATIENT
  Age: 59 Year
  Sex: Male
  Weight: 95 kg

DRUGS (3)
  1. METHOTREXATE SODIUM [Suspect]
     Active Substance: METHOTREXATE SODIUM
     Dosage: 25 MG, WEEKLY
     Route: 048
  2. PREDNISOLONE [Concomitant]
     Active Substance: PREDNISOLONE
     Indication: Neurosarcoidosis
     Dosage: 75 MG, DAILY
  3. PREDNISOLONE [Concomitant]
     Active Substance: PREDNISOLONE
     Dosage: 1 G MTP X 3 DAYS

REACTIONS (10)
  - Drug ineffective [Unknown]
  - Disease progression [Unknown]
  - Neurosarcoidosis [Unknown]
  - Sarcoidosis [Unknown]
  - Shunt occlusion [Unknown]
  - Hydrocephalus [Unknown]
  - Lymphadenopathy [Unknown]
  - Lumbar radiculopathy [Unknown]
  - Hyperglycaemia [Unknown]
  - Osteoporosis [Unknown]
